FAERS Safety Report 16916214 (Version 1)
Quarter: 2019Q4

REPORT INFORMATION
  Report Type: Spontaneous
  Country: US (occurrence: US)
  Receive Date: 20191014
  Receipt Date: 20191014
  Transmission Date: 20200122
  Serious: Yes (Other)
  Sender: FDA-Public Use
  Company Number: US-ASSERTIO THERAPEUTICS, INC.-US-2019DEP001082

PATIENT
  Age: 49 Year
  Sex: Female

DRUGS (1)
  1. ZIPSOR [Suspect]
     Active Substance: DICLOFENAC POTASSIUM
     Indication: ROTATOR CUFF SYNDROME
     Dosage: 25 MG, UNK
     Route: 048
     Dates: end: 20190904

REACTIONS (1)
  - Endoscopy [Recovered/Resolved]

NARRATIVE: CASE EVENT DATE: 20190904
